FAERS Safety Report 15809122 (Version 2)
Quarter: 2019Q1

REPORT INFORMATION
  Report Type: Report from Study
  Country: PL (occurrence: PL)
  Receive Date: 20190110
  Receipt Date: 20190114
  Transmission Date: 20190417
  Serious: Yes (Death)
  Sender: FDA-Public Use
  Company Number: PHHY2019PL003610

PATIENT
  Age: 48 Year
  Sex: Female
  Weight: 80 kg

DRUGS (5)
  1. LEE011 [Suspect]
     Active Substance: RIBOCICLIB
     Indication: BREAST CANCER
     Dosage: 600 MG, (1-21 DAY)
     Route: 048
     Dates: start: 20180912
  2. FENTANYL. [Concomitant]
     Active Substance: FENTANYL
     Indication: PAIN
     Dosage: 50 MG, UNK
     Route: 065
     Dates: start: 201808
  3. SEVREDOL [Concomitant]
     Active Substance: MORPHINE
     Indication: PAIN
     Dosage: 20 MG, UNK
     Route: 065
     Dates: start: 201808, end: 20181110
  4. ARIMIDEX [Concomitant]
     Active Substance: ANASTROZOLE
     Indication: BREAST CANCER
     Dosage: 1 DF, UNK
     Route: 065
     Dates: start: 20180912, end: 20181110
  5. NEOPARIN [Concomitant]
     Indication: PROPHYLAXIS
     Dosage: 60 MG, UNK
     Route: 065
     Dates: start: 201808, end: 20181110

REACTIONS (8)
  - Malignant neoplasm progression [Fatal]
  - Glomerular filtration rate decreased [Unknown]
  - Aspartate aminotransferase increased [Unknown]
  - Drug ineffective [Unknown]
  - Red blood cell count decreased [Unknown]
  - Platelet count decreased [Unknown]
  - Breast cancer [Fatal]
  - Alanine aminotransferase increased [Unknown]

NARRATIVE: CASE EVENT DATE: 20181106
